FAERS Safety Report 8642110 (Version 7)
Quarter: 2021Q1

REPORT INFORMATION
  Report Type: Spontaneous
  Country: US (occurrence: US)
  Receive Date: 20120628
  Receipt Date: 20210212
  Transmission Date: 20210420
  Serious: Yes (Other)
  Sender: FDA-Public Use
  Company Number: US-PFIZER INC-2012150760

PATIENT
  Age: 84 Year
  Sex: Female

DRUGS (7)
  1. BRIMONIDINE [Concomitant]
     Active Substance: BRIMONIDINE TARTRATE
     Indication: GLAUCOMA
     Dosage: 1 DROP EACH EYE TWICE DAILY
     Route: 047
     Dates: start: 20110421
  2. FLAGYL [Concomitant]
     Active Substance: METRONIDAZOLE\METRONIDAZOLE HYDROCHLORIDE
     Dosage: 250 MG, UNK
  3. OMEPRAZOLE. [Concomitant]
     Active Substance: OMEPRAZOLE
     Dosage: 20 MG, UNK
  4. XALATAN [Suspect]
     Active Substance: LATANOPROST
     Indication: GLAUCOMA
     Dosage: ONE DROP EACH EYE AT BEDTIME
     Route: 061
     Dates: start: 20020918
  5. XALATAN [Suspect]
     Active Substance: LATANOPROST
     Dosage: 1 DROP INTO BOTH EYES AT BEDTIME
     Route: 047
     Dates: start: 20170118
  6. REMICADE [Concomitant]
     Active Substance: INFLIXIMAB
     Dosage: 100 MG, UNK
  7. TIMOLOL. [Concomitant]
     Active Substance: TIMOLOL
     Indication: GLAUCOMA
     Dosage: 1 DROP EACH EYE TWICE DAILY
     Route: 047
     Dates: start: 20030115

REACTIONS (2)
  - Condition aggravated [Not Recovered/Not Resolved]
  - Macular degeneration [Not Recovered/Not Resolved]
